FAERS Safety Report 4807307-4 (Version None)
Quarter: 2005Q4

REPORT INFORMATION
  Report Type: 
  Country: None (occurrence: None)
  Receive Date: 20051020
  Receipt Date: 20051020
  Transmission Date: 20060501
  Serious: Yes (Hospitalization)
  Sender: FDA-Public Use
  Company Number: None

PATIENT
  Age: 75 Year
  Sex: Female

DRUGS (9)
  1. LISINOPRIL [Suspect]
     Dosage: HPTN
  2. AZITHROMYCIN [Suspect]
     Dosage: BRONCHITIS
  3. TYLENOL (CAPLET) [Concomitant]
  4. HYDROCHLOROTHIZIDE [Concomitant]
  5. CITALOPRAM [Concomitant]
  6. LEVOTHYRINE [Concomitant]
  7. GEMFIBROZIL [Concomitant]
  8. OXYBUTYNIN [Concomitant]
  9. POTASSIUM CHLORIDE [Concomitant]

REACTIONS (3)
  - PRURITUS [None]
  - SWELLING FACE [None]
  - SWOLLEN TONGUE [None]
